FAERS Safety Report 13266179 (Version 4)
Quarter: 2017Q2

REPORT INFORMATION
  Report Type: Report from Study
  Country: US (occurrence: US)
  Receive Date: 20170223
  Receipt Date: 20170601
  Transmission Date: 20170830
  Serious: Yes (Hospitalization)
  Sender: FDA-Public Use
  Company Number: US-ACTELION-A-NJ2016-147659

PATIENT
  Age: 25 Year
  Sex: Male
  Weight: 49.43 kg

DRUGS (4)
  1. XARELTO [Concomitant]
     Active Substance: RIVAROXABAN
  2. VELETRI [Suspect]
     Active Substance: EPOPROSTENOL
     Dosage: 20 NG/KG, PER MIN
     Route: 042
     Dates: start: 20151116
  3. ADCIRCA [Concomitant]
     Active Substance: TADALAFIL
  4. VELETRI [Suspect]
     Active Substance: EPOPROSTENOL
     Indication: PULMONARY HYPERTENSION
     Dosage: 26 NG/KG, PER MIN
     Route: 042

REACTIONS (28)
  - Staphylococcal sepsis [Recovered/Resolved]
  - Nausea [Unknown]
  - Headache [Unknown]
  - Bacteraemia [Recovered/Resolved]
  - Anaemia [Unknown]
  - Sepsis [Recovered/Resolved]
  - Endocarditis [Recovered/Resolved]
  - Diarrhoea [Unknown]
  - Blood culture positive [Recovered/Resolved]
  - Heart and lung transplant [Unknown]
  - Chills [Recovered/Resolved]
  - Pyrexia [Recovered/Resolved]
  - Skin irritation [Recovered/Resolved]
  - Tooth infection [Recovered/Resolved]
  - Device alarm issue [Unknown]
  - Device related infection [Recovered/Resolved]
  - Bacterial infection [Recovered/Resolved]
  - Cellulitis [Recovered/Resolved]
  - Catheter site infection [Unknown]
  - Fluid overload [Recovered/Resolved]
  - Right ventricular failure [Recovered/Resolved]
  - Device occlusion [Recovered/Resolved]
  - Catheter management [Unknown]
  - Pruritus [Recovered/Resolved]
  - Vomiting [Unknown]
  - Septic shock [Recovered/Resolved]
  - Staphylococcal infection [Recovered/Resolved]
  - Device related thrombosis [Unknown]

NARRATIVE: CASE EVENT DATE: 201610
